FAERS Safety Report 15081192 (Version 1)
Quarter: 2018Q2

REPORT INFORMATION
  Report Type: Spontaneous
  Country: HU (occurrence: HU)
  Receive Date: 20180628
  Receipt Date: 20180628
  Transmission Date: 20180711
  Serious: Yes (Other)
  Sender: FDA-Public Use
  Company Number: HU-ROCHE-2142653

PATIENT
  Age: 8 Year
  Sex: Male

DRUGS (10)
  1. MYCOPHENOLATE MOFETIL. [Suspect]
     Active Substance: MYCOPHENOLATE MOFETIL
     Indication: ALLOGENIC BONE MARROW TRANSPLANTATION THERAPY
  2. AZATHIOPRINE. [Suspect]
     Active Substance: AZATHIOPRINE
     Indication: IMMUNOSUPPRESSANT DRUG THERAPY
     Route: 065
     Dates: start: 2016
  3. SIROLIMUS. [Concomitant]
     Active Substance: SIROLIMUS
     Indication: DERMATITIS EXFOLIATIVE GENERALISED
     Route: 065
     Dates: start: 20161128
  4. HYDROXYUREA. [Concomitant]
     Active Substance: HYDROXYUREA
     Indication: ALLOGENIC BONE MARROW TRANSPLANTATION THERAPY
     Dosage: UNK
     Route: 065
     Dates: start: 2016
  5. SIROLIMUS. [Concomitant]
     Active Substance: SIROLIMUS
     Indication: PYREXIA
     Dosage: UNK
     Route: 065
  6. SIROLIMUS. [Concomitant]
     Active Substance: SIROLIMUS
     Indication: IMMUNOSUPPRESSANT DRUG THERAPY
     Route: 065
  7. AZATHIOPRINE. [Suspect]
     Active Substance: AZATHIOPRINE
     Indication: ALLOGENIC BONE MARROW TRANSPLANTATION THERAPY
     Route: 065
  8. MYCOPHENOLATE MOFETIL. [Suspect]
     Active Substance: MYCOPHENOLATE MOFETIL
     Indication: DERMATITIS EXFOLIATIVE GENERALISED
     Dosage: UNK
     Route: 065
  9. MYCOPHENOLATE MOFETIL. [Suspect]
     Active Substance: MYCOPHENOLATE MOFETIL
     Indication: PYREXIA
  10. MYCOPHENOLATE MOFETIL. [Suspect]
     Active Substance: MYCOPHENOLATE MOFETIL
     Indication: IMMUNOSUPPRESSANT DRUG THERAPY
     Route: 065
     Dates: start: 20161128

REACTIONS (19)
  - Cystitis haemorrhagic [Recovered/Resolved]
  - BK virus infection [Recovered/Resolved]
  - Haematochezia [Recovered/Resolved]
  - Weight decreased [Recovered/Resolved]
  - Graft versus host disease in skin [Recovering/Resolving]
  - Transplant failure [Recovered/Resolved]
  - Eating disorder [Recovered/Resolved]
  - Graft versus host disease in liver [Recovered/Resolved]
  - Pyrexia [Recovered/Resolved]
  - Pancytopenia [Recovered/Resolved]
  - Rectal tenesmus [Recovered/Resolved]
  - Vomiting [Recovered/Resolved]
  - Necrotising fasciitis [Recovered/Resolved]
  - Viraemia [Recovered/Resolved]
  - Cellulitis [Recovered/Resolved]
  - Cytomegalovirus infection [Recovered/Resolved]
  - Graft versus host disease in gastrointestinal tract [Recovered/Resolved]
  - Protein deficiency [Recovered/Resolved]
  - Dermatitis exfoliative generalised [Recovering/Resolving]

NARRATIVE: CASE EVENT DATE: 201611
